FAERS Safety Report 19373102 (Version 1)
Quarter: 2021Q2

REPORT INFORMATION
  Report Type: Spontaneous
  Country: US (occurrence: US)
  Receive Date: 20210604
  Receipt Date: 20210604
  Transmission Date: 20210717
  Serious: No
  Sender: FDA-Public Use
  Company Number: US-BAYER-2021-149285

PATIENT
  Age: 28 Year
  Sex: Female
  Weight: 65 kg

DRUGS (1)
  1. MIRENA [Suspect]
     Active Substance: LEVONORGESTREL
     Dosage: 20 ?G PER DAY CONITNUOUSLY
     Route: 015
     Dates: start: 20180718, end: 20210504

REACTIONS (4)
  - Unintentional medical device removal [None]
  - Human papilloma virus test positive [None]
  - Cervical dysplasia [None]
  - Amenorrhoea [None]

NARRATIVE: CASE EVENT DATE: 20210504
